FAERS Safety Report 15154952 (Version 3)
Quarter: 2018Q4

REPORT INFORMATION
  Report Type: Report from Study
  Country: KR (occurrence: KR)
  Receive Date: 20180717
  Receipt Date: 20181116
  Transmission Date: 20190204
  Serious: Yes (Death, Hospitalization)
  Sender: FDA-Public Use
  Company Number: KR-PFIZER INC-2018209001

PATIENT
  Age: 66 Year
  Sex: Male
  Weight: 62.6 kg

DRUGS (31)
  1. CODEINE [Concomitant]
     Active Substance: CODEINE
     Dosage: UNK
     Dates: start: 20180309, end: 20180423
  2. MOTILITONE [Concomitant]
     Active Substance: HERBALS
     Dosage: IPOMOEA NIL SEED
     Dates: start: 20180419, end: 20180424
  3. ACETAMINOPHEN. [Concomitant]
     Active Substance: ACETAMINOPHEN
     Dosage: UNK
     Dates: start: 20180410, end: 20180515
  4. NIFEDIPINE. [Concomitant]
     Active Substance: NIFEDIPINE
     Dosage: UNK
     Dates: start: 20180424, end: 20180424
  5. PALONOSETRON. [Concomitant]
     Active Substance: PALONOSETRON HYDROCHLORIDE
     Dosage: UNK
     Dates: start: 20180424, end: 20180424
  6. PALONOSETRON. [Concomitant]
     Active Substance: PALONOSETRON HYDROCHLORIDE
     Dosage: UNK
     Dates: start: 20180425, end: 20180425
  7. DEXAMETHASONE. [Concomitant]
     Active Substance: DEXAMETHASONE
     Dosage: UNK
     Dates: start: 20180424, end: 20180424
  8. RED BLOOD CELLS [Concomitant]
     Active Substance: HUMAN RED BLOOD CELL
     Dosage: UNK
     Dates: start: 20180427, end: 20180427
  9. CLINOLEIC [Concomitant]
     Active Substance: OLIVE OIL\SOYBEAN OIL
     Dosage: UNK
     Dates: start: 20180427, end: 20180427
  10. IRINOTECAN HCL [Suspect]
     Active Substance: IRINOTECAN HYDROCHLORIDE
     Indication: SMALL CELL LUNG CANCER
     Dosage: 581 MG, TOTAL DAILY DOSE
     Route: 041
     Dates: start: 20180424
  11. IRINOTECAN HCL [Suspect]
     Active Substance: IRINOTECAN HYDROCHLORIDE
     Dosage: 581 MG, TOTAL DAILY DOSE
     Route: 041
     Dates: end: 20180516
  12. BEARSE [Concomitant]
     Dosage: UNK
     Dates: start: 20180424, end: 20180515
  13. FUROSEMIDE. [Concomitant]
     Active Substance: FUROSEMIDE
     Dosage: UNK
     Dates: start: 20180424, end: 20180424
  14. ZOLPIDEM [Concomitant]
     Active Substance: ZOLPIDEM\ZOLPIDEM TARTRATE
     Dosage: UNK
     Dates: start: 20180426, end: 20180515
  15. ASCORBIC ACID. [Concomitant]
     Active Substance: ASCORBIC ACID
     Dosage: UNK
     Dates: start: 20180427, end: 20180427
  16. FEXOFENADINE [Concomitant]
     Active Substance: FEXOFENADINE\FEXOFENADINE HYDROCHLORIDE
     Dosage: UNK
     Dates: start: 20180410, end: 20180423
  17. WINUF PERI [Concomitant]
     Dosage: UNK
     Dates: start: 20180420, end: 20180426
  18. METOCLOPRAMIDE. [Concomitant]
     Active Substance: METOCLOPRAMIDE
     Dosage: UNK
     Dates: start: 20180423, end: 20180424
  19. CHLORPHENIRAMINE [CHLORPHENAMINE] [Concomitant]
     Dosage: UNK
     Dates: start: 20180427, end: 20180427
  20. MEGESTROL [Concomitant]
     Active Substance: MEGESTROL
     Dosage: UNK
     Dates: start: 20180420, end: 20180515
  21. AMYTAL [AMOBARBITAL] [Concomitant]
     Dosage: UNK
     Dates: start: 20180424, end: 20180512
  22. FUROSEMIDE. [Concomitant]
     Active Substance: FUROSEMIDE
     Dosage: UNK
     Dates: start: 20180427, end: 20180427
  23. SMECTA [ALUMINIUM HYDROXIDE-MAGNESIUM CARBONATE GEL;ALUMINIUM MAGNESIU [Concomitant]
     Dosage: UNK
     Dates: start: 20180501, end: 20180501
  24. ACETAMINOPHEN;CODEINE;IBUPROFEN [Concomitant]
     Dosage: UNK
     Dates: start: 20180420, end: 20180515
  25. METOCLOPRAMIDE. [Concomitant]
     Active Substance: METOCLOPRAMIDE
     Dosage: UNK
     Dates: start: 20180426, end: 20180426
  26. IPRATROPIUM [Concomitant]
     Active Substance: IPRATROPIUM
     Dosage: UNK
     Dates: start: 20180424, end: 20180502
  27. SALBUTAMOL [Concomitant]
     Active Substance: ALBUTEROL
     Dosage: UNK
     Dates: start: 20180424, end: 20180502
  28. ESOMEPRAZOLE. [Concomitant]
     Active Substance: ESOMEPRAZOLE MAGNESIUM
     Dosage: UNK
     Dates: start: 20180424, end: 20180425
  29. ATROPINE. [Concomitant]
     Active Substance: ATROPINE
     Dosage: UNK
     Dates: start: 20180424, end: 20180424
  30. NORMAL SALINE [Concomitant]
     Active Substance: SODIUM CHLORIDE
     Dosage: UNK
     Dates: start: 20180424, end: 20180424
  31. LOPERAMIDE [Concomitant]
     Active Substance: LOPERAMIDE
     Dosage: UNK
     Dates: start: 20180425, end: 20180425

REACTIONS (2)
  - Dyspnoea [Not Recovered/Not Resolved]
  - Neoplasm progression [Fatal]

NARRATIVE: CASE EVENT DATE: 2018
